FAERS Safety Report 19620122 (Version 1)
Quarter: 2021Q3

REPORT INFORMATION
  Report Type: Spontaneous
  Country: US (occurrence: US)
  Receive Date: 20210728
  Receipt Date: 20210728
  Transmission Date: 20211014
  Serious: No
  Sender: FDA-Public Use
  Company Number: US-ROCHE-2728921

PATIENT
  Age: 59 Year
  Sex: Male

DRUGS (12)
  1. XELODA [Suspect]
     Active Substance: CAPECITABINE
     Indication: COLON CANCER METASTATIC
     Route: 048
     Dates: start: 202009
  2. PREDNISONE. [Concomitant]
     Active Substance: PREDNISONE
     Dosage: 3 TABLET ORAL DAILY FOR 5 DAYS
     Route: 048
  3. OXYCODONE AND ACETAMINOPHEN [Concomitant]
     Active Substance: ACETAMINOPHEN\OXYCODONE HYDROCHLORIDE
     Dosage: 7.5MG?325MG
     Route: 048
  4. VALTREX [Concomitant]
     Active Substance: VALACYCLOVIR HYDROCHLORIDE
     Dosage: FOR 7 DAYS
     Route: 048
  5. IRON [Concomitant]
     Active Substance: IRON
     Route: 042
  6. XELODA [Suspect]
     Active Substance: CAPECITABINE
     Indication: RECTAL ADENOCARCINOMA
     Route: 048
     Dates: start: 202010
  7. PERCOCET [Concomitant]
     Active Substance: ACETAMINOPHEN\OXYCODONE HYDROCHLORIDE
     Dosage: 7.5 ?325MG
     Route: 048
  8. ONDANSETRON [Concomitant]
     Active Substance: ONDANSETRON
     Route: 048
  9. LIDOCAINE;PRILOCAINE [Concomitant]
     Dosage: 2.5?2.5 %
     Route: 061
  10. LISINOPRIL. [Concomitant]
     Active Substance: LISINOPRIL
     Dosage: ONE TABLET DAILY
     Route: 048
  11. PANTOPRAZOLE SODIUM. [Concomitant]
     Active Substance: PANTOPRAZOLE SODIUM
     Dosage: ONE TABLET DAILY
     Route: 048
  12. HYDROCHLOROTHIAZIDE. [Concomitant]
     Active Substance: HYDROCHLOROTHIAZIDE
     Route: 048

REACTIONS (5)
  - Insomnia [Unknown]
  - Pain [Unknown]
  - Herpes zoster [Recovering/Resolving]
  - Abdominal pain [Recovered/Resolved]
  - Rash [Unknown]

NARRATIVE: CASE EVENT DATE: 20201123
